FAERS Safety Report 10158577 (Version 1)
Quarter: 2014Q2

REPORT INFORMATION
  Report Type: Spontaneous
  Country: CA (occurrence: CA)
  Receive Date: 20140507
  Receipt Date: 20140507
  Transmission Date: 20141212
  Serious: Yes (Other)
  Sender: FDA-Public Use
  Company Number: CA-ROCHE-1391615

PATIENT
  Age: 72 Year
  Sex: Female
  Weight: 49.94 kg

DRUGS (4)
  1. CLONAZEPAM [Suspect]
     Indication: PRODUCT USED FOR UNKNOWN INDICATION
     Dosage: FOR 13 DAYS
     Route: 048
  2. CYCLOBENZAPRINE [Concomitant]
  3. LATANOPROST [Concomitant]
  4. NADOLOL [Concomitant]

REACTIONS (7)
  - Agitation [Recovering/Resolving]
  - Anxiety [Recovering/Resolving]
  - Eye pruritus [Recovering/Resolving]
  - Eye swelling [Recovering/Resolving]
  - Pharyngeal oedema [Recovering/Resolving]
  - Suicidal ideation [Recovering/Resolving]
  - Tremor [Recovering/Resolving]
